FAERS Safety Report 21962716 (Version 6)
Quarter: 2025Q2

REPORT INFORMATION
  Report Type: Spontaneous
  Country: ES (occurrence: ES)
  Receive Date: 20230207
  Receipt Date: 20250604
  Transmission Date: 20250717
  Serious: Yes (Hospitalization, Other)
  Sender: MYLAN
  Company Number: ES-Accord-294728

PATIENT
  Age: 65 Year
  Sex: Male

DRUGS (256)
  1. MYCOPHENOLATE MOFETIL [Suspect]
     Active Substance: MYCOPHENOLATE MOFETIL
     Indication: Product used for unknown indication
  2. MYCOPHENOLATE MOFETIL [Suspect]
     Active Substance: MYCOPHENOLATE MOFETIL
     Route: 065
  3. MYCOPHENOLATE MOFETIL [Suspect]
     Active Substance: MYCOPHENOLATE MOFETIL
     Route: 065
  4. MYCOPHENOLATE MOFETIL [Suspect]
     Active Substance: MYCOPHENOLATE MOFETIL
  5. CYCLOSPORINE [Suspect]
     Active Substance: CYCLOSPORINE
     Indication: Immunosuppressant drug therapy
  6. CYCLOSPORINE [Suspect]
     Active Substance: CYCLOSPORINE
     Indication: Liver transplant
  7. CYCLOSPORINE [Suspect]
     Active Substance: CYCLOSPORINE
     Route: 065
  8. CYCLOSPORINE [Suspect]
     Active Substance: CYCLOSPORINE
     Route: 065
  9. CYCLOSPORINE [Suspect]
     Active Substance: CYCLOSPORINE
     Route: 065
  10. CYCLOSPORINE [Suspect]
     Active Substance: CYCLOSPORINE
     Route: 065
  11. CYCLOSPORINE [Suspect]
     Active Substance: CYCLOSPORINE
  12. CYCLOSPORINE [Suspect]
     Active Substance: CYCLOSPORINE
  13. CYCLOSPORINE [Suspect]
     Active Substance: CYCLOSPORINE
     Route: 065
  14. CYCLOSPORINE [Suspect]
     Active Substance: CYCLOSPORINE
     Route: 065
  15. CYCLOSPORINE [Suspect]
     Active Substance: CYCLOSPORINE
  16. CYCLOSPORINE [Suspect]
     Active Substance: CYCLOSPORINE
  17. CYCLOSPORINE [Suspect]
     Active Substance: CYCLOSPORINE
     Route: 065
  18. CYCLOSPORINE [Suspect]
     Active Substance: CYCLOSPORINE
     Route: 065
  19. CYCLOSPORINE [Suspect]
     Active Substance: CYCLOSPORINE
  20. CYCLOSPORINE [Suspect]
     Active Substance: CYCLOSPORINE
  21. CYCLOSPORINE [Suspect]
     Active Substance: CYCLOSPORINE
     Route: 065
  22. CYCLOSPORINE [Suspect]
     Active Substance: CYCLOSPORINE
  23. CYCLOSPORINE [Suspect]
     Active Substance: CYCLOSPORINE
  24. CYCLOSPORINE [Suspect]
     Active Substance: CYCLOSPORINE
     Route: 065
  25. CYCLOSPORINE [Suspect]
     Active Substance: CYCLOSPORINE
  26. CYCLOSPORINE [Suspect]
     Active Substance: CYCLOSPORINE
  27. CYCLOSPORINE [Suspect]
     Active Substance: CYCLOSPORINE
     Route: 065
  28. CYCLOSPORINE [Suspect]
     Active Substance: CYCLOSPORINE
     Route: 065
  29. EVEROLIMUS [Suspect]
     Active Substance: EVEROLIMUS
     Indication: Immunosuppressant drug therapy
  30. EVEROLIMUS [Suspect]
     Active Substance: EVEROLIMUS
     Indication: Liver transplant
  31. EVEROLIMUS [Suspect]
     Active Substance: EVEROLIMUS
     Route: 065
  32. EVEROLIMUS [Suspect]
     Active Substance: EVEROLIMUS
     Route: 065
  33. EVEROLIMUS [Suspect]
     Active Substance: EVEROLIMUS
     Route: 065
  34. EVEROLIMUS [Suspect]
     Active Substance: EVEROLIMUS
  35. EVEROLIMUS [Suspect]
     Active Substance: EVEROLIMUS
  36. EVEROLIMUS [Suspect]
     Active Substance: EVEROLIMUS
     Route: 065
  37. EVEROLIMUS [Suspect]
     Active Substance: EVEROLIMUS
  38. EVEROLIMUS [Suspect]
     Active Substance: EVEROLIMUS
  39. EVEROLIMUS [Suspect]
     Active Substance: EVEROLIMUS
     Route: 065
  40. EVEROLIMUS [Suspect]
     Active Substance: EVEROLIMUS
     Route: 065
  41. EVEROLIMUS [Suspect]
     Active Substance: EVEROLIMUS
  42. EVEROLIMUS [Suspect]
     Active Substance: EVEROLIMUS
  43. EVEROLIMUS [Suspect]
     Active Substance: EVEROLIMUS
     Route: 065
  44. EVEROLIMUS [Suspect]
     Active Substance: EVEROLIMUS
     Route: 065
  45. EVEROLIMUS [Suspect]
     Active Substance: EVEROLIMUS
     Route: 065
  46. EVEROLIMUS [Suspect]
     Active Substance: EVEROLIMUS
  47. EVEROLIMUS [Suspect]
     Active Substance: EVEROLIMUS
  48. EVEROLIMUS [Suspect]
     Active Substance: EVEROLIMUS
     Route: 065
  49. BISOPROLOL [Concomitant]
     Active Substance: BISOPROLOL
     Indication: Atrial fibrillation
  50. BISOPROLOL [Concomitant]
     Active Substance: BISOPROLOL
     Indication: Prophylaxis
  51. BISOPROLOL [Concomitant]
     Active Substance: BISOPROLOL
     Route: 065
  52. BISOPROLOL [Concomitant]
     Active Substance: BISOPROLOL
     Route: 065
  53. BISOPROLOL [Concomitant]
     Active Substance: BISOPROLOL
  54. BISOPROLOL [Concomitant]
     Active Substance: BISOPROLOL
  55. BISOPROLOL [Concomitant]
     Active Substance: BISOPROLOL
     Route: 065
  56. BISOPROLOL [Concomitant]
     Active Substance: BISOPROLOL
     Route: 065
  57. BISOPROLOL [Concomitant]
     Active Substance: BISOPROLOL
     Route: 065
  58. BISOPROLOL [Concomitant]
     Active Substance: BISOPROLOL
     Route: 065
  59. BISOPROLOL [Concomitant]
     Active Substance: BISOPROLOL
  60. BISOPROLOL [Concomitant]
     Active Substance: BISOPROLOL
  61. BISOPROLOL [Concomitant]
     Active Substance: BISOPROLOL
  62. BISOPROLOL [Concomitant]
     Active Substance: BISOPROLOL
  63. BISOPROLOL [Concomitant]
     Active Substance: BISOPROLOL
     Route: 065
  64. BISOPROLOL [Concomitant]
     Active Substance: BISOPROLOL
     Route: 065
  65. BISOPROLOL [Concomitant]
     Active Substance: BISOPROLOL
     Route: 065
  66. BISOPROLOL [Concomitant]
     Active Substance: BISOPROLOL
     Route: 065
  67. BISOPROLOL [Concomitant]
     Active Substance: BISOPROLOL
  68. BISOPROLOL [Concomitant]
     Active Substance: BISOPROLOL
  69. AMIODARONE [Concomitant]
     Active Substance: AMIODARONE
     Indication: Atrial fibrillation
  70. AMIODARONE [Concomitant]
     Active Substance: AMIODARONE
     Indication: Prophylaxis
  71. AMIODARONE [Concomitant]
     Active Substance: AMIODARONE
     Route: 065
  72. AMIODARONE [Concomitant]
     Active Substance: AMIODARONE
     Route: 065
  73. AMIODARONE [Concomitant]
     Active Substance: AMIODARONE
     Route: 065
  74. AMIODARONE [Concomitant]
     Active Substance: AMIODARONE
     Route: 065
  75. AMIODARONE [Concomitant]
     Active Substance: AMIODARONE
  76. AMIODARONE [Concomitant]
     Active Substance: AMIODARONE
  77. AMIODARONE [Concomitant]
     Active Substance: AMIODARONE
     Route: 065
  78. AMIODARONE [Concomitant]
     Active Substance: AMIODARONE
  79. AMIODARONE [Concomitant]
     Active Substance: AMIODARONE
  80. AMIODARONE [Concomitant]
     Active Substance: AMIODARONE
     Route: 065
  81. AMIODARONE [Concomitant]
     Active Substance: AMIODARONE
  82. AMIODARONE [Concomitant]
     Active Substance: AMIODARONE
  83. AMIODARONE [Concomitant]
     Active Substance: AMIODARONE
     Route: 065
  84. AMIODARONE [Concomitant]
     Active Substance: AMIODARONE
     Route: 065
  85. FUROSEMIDE [Concomitant]
     Active Substance: FUROSEMIDE
     Indication: Diuretic therapy
     Route: 065
  86. FUROSEMIDE [Concomitant]
     Active Substance: FUROSEMIDE
  87. FUROSEMIDE [Concomitant]
     Active Substance: FUROSEMIDE
  88. FUROSEMIDE [Concomitant]
     Active Substance: FUROSEMIDE
     Route: 065
  89. FUROSEMIDE [Concomitant]
     Active Substance: FUROSEMIDE
     Route: 065
  90. FUROSEMIDE [Concomitant]
     Active Substance: FUROSEMIDE
  91. FUROSEMIDE [Concomitant]
     Active Substance: FUROSEMIDE
  92. FUROSEMIDE [Concomitant]
     Active Substance: FUROSEMIDE
     Route: 065
  93. FUROSEMIDE [Concomitant]
     Active Substance: FUROSEMIDE
     Route: 065
  94. FUROSEMIDE [Concomitant]
     Active Substance: FUROSEMIDE
  95. FUROSEMIDE [Concomitant]
     Active Substance: FUROSEMIDE
  96. FUROSEMIDE [Concomitant]
     Active Substance: FUROSEMIDE
     Route: 065
  97. FUROSEMIDE [Concomitant]
     Active Substance: FUROSEMIDE
  98. FUROSEMIDE [Concomitant]
     Active Substance: FUROSEMIDE
  99. FUROSEMIDE [Concomitant]
     Active Substance: FUROSEMIDE
     Route: 065
  100. FUROSEMIDE [Concomitant]
     Active Substance: FUROSEMIDE
     Route: 065
  101. SACUBITRIL\VALSARTAN [Concomitant]
     Active Substance: SACUBITRIL\VALSARTAN
     Indication: Cardiac failure congestive
  102. SACUBITRIL\VALSARTAN [Concomitant]
     Active Substance: SACUBITRIL\VALSARTAN
  103. SACUBITRIL\VALSARTAN [Concomitant]
     Active Substance: SACUBITRIL\VALSARTAN
     Route: 065
  104. SACUBITRIL\VALSARTAN [Concomitant]
     Active Substance: SACUBITRIL\VALSARTAN
     Route: 065
  105. SACUBITRIL\VALSARTAN [Concomitant]
     Active Substance: SACUBITRIL\VALSARTAN
     Route: 065
  106. SACUBITRIL\VALSARTAN [Concomitant]
     Active Substance: SACUBITRIL\VALSARTAN
     Route: 065
  107. SACUBITRIL\VALSARTAN [Concomitant]
     Active Substance: SACUBITRIL\VALSARTAN
  108. SACUBITRIL\VALSARTAN [Concomitant]
     Active Substance: SACUBITRIL\VALSARTAN
  109. SACUBITRIL\VALSARTAN [Concomitant]
     Active Substance: SACUBITRIL\VALSARTAN
     Route: 065
  110. SACUBITRIL\VALSARTAN [Concomitant]
     Active Substance: SACUBITRIL\VALSARTAN
  111. SACUBITRIL\VALSARTAN [Concomitant]
     Active Substance: SACUBITRIL\VALSARTAN
  112. SACUBITRIL\VALSARTAN [Concomitant]
     Active Substance: SACUBITRIL\VALSARTAN
     Route: 065
  113. SACUBITRIL\VALSARTAN [Concomitant]
     Active Substance: SACUBITRIL\VALSARTAN
  114. SACUBITRIL\VALSARTAN [Concomitant]
     Active Substance: SACUBITRIL\VALSARTAN
  115. SACUBITRIL\VALSARTAN [Concomitant]
     Active Substance: SACUBITRIL\VALSARTAN
     Route: 065
  116. SACUBITRIL\VALSARTAN [Concomitant]
     Active Substance: SACUBITRIL\VALSARTAN
     Route: 065
  117. ACENOCOUMAROL [Concomitant]
     Active Substance: ACENOCOUMAROL
     Indication: Antiplatelet therapy
  118. ACENOCOUMAROL [Concomitant]
     Active Substance: ACENOCOUMAROL
  119. ACENOCOUMAROL [Concomitant]
     Active Substance: ACENOCOUMAROL
     Route: 065
  120. ACENOCOUMAROL [Concomitant]
     Active Substance: ACENOCOUMAROL
     Route: 065
  121. ACENOCOUMAROL [Concomitant]
     Active Substance: ACENOCOUMAROL
     Route: 065
  122. ACENOCOUMAROL [Concomitant]
     Active Substance: ACENOCOUMAROL
     Route: 065
  123. ACENOCOUMAROL [Concomitant]
     Active Substance: ACENOCOUMAROL
  124. ACENOCOUMAROL [Concomitant]
     Active Substance: ACENOCOUMAROL
  125. ACENOCOUMAROL [Concomitant]
     Active Substance: ACENOCOUMAROL
     Route: 065
  126. ACENOCOUMAROL [Concomitant]
     Active Substance: ACENOCOUMAROL
  127. ACENOCOUMAROL [Concomitant]
     Active Substance: ACENOCOUMAROL
  128. ACENOCOUMAROL [Concomitant]
     Active Substance: ACENOCOUMAROL
     Route: 065
  129. ACENOCOUMAROL [Concomitant]
     Active Substance: ACENOCOUMAROL
  130. ACENOCOUMAROL [Concomitant]
     Active Substance: ACENOCOUMAROL
  131. ACENOCOUMAROL [Concomitant]
     Active Substance: ACENOCOUMAROL
     Route: 065
  132. ACENOCOUMAROL [Concomitant]
     Active Substance: ACENOCOUMAROL
     Route: 065
  133. ATORVASTATIN [Concomitant]
     Active Substance: ATORVASTATIN
     Indication: Hypolipidaemia
  134. ATORVASTATIN [Concomitant]
     Active Substance: ATORVASTATIN
     Route: 065
  135. ATORVASTATIN [Concomitant]
     Active Substance: ATORVASTATIN
     Route: 065
  136. ATORVASTATIN [Concomitant]
     Active Substance: ATORVASTATIN
  137. OMEPRAZOLE [Concomitant]
     Active Substance: OMEPRAZOLE
     Indication: Prophylaxis
  138. OMEPRAZOLE [Concomitant]
     Active Substance: OMEPRAZOLE
     Route: 065
  139. OMEPRAZOLE [Concomitant]
     Active Substance: OMEPRAZOLE
     Route: 065
  140. OMEPRAZOLE [Concomitant]
     Active Substance: OMEPRAZOLE
  141. FOLIC ACID [Concomitant]
     Active Substance: FOLIC ACID
     Indication: Vitamin supplementation
     Route: 065
  142. FOLIC ACID [Concomitant]
     Active Substance: FOLIC ACID
  143. FOLIC ACID [Concomitant]
     Active Substance: FOLIC ACID
  144. FOLIC ACID [Concomitant]
     Active Substance: FOLIC ACID
     Route: 065
  145. FOLIC ACID [Concomitant]
     Active Substance: FOLIC ACID
     Route: 065
  146. FOLIC ACID [Concomitant]
     Active Substance: FOLIC ACID
  147. FOLIC ACID [Concomitant]
     Active Substance: FOLIC ACID
  148. FOLIC ACID [Concomitant]
     Active Substance: FOLIC ACID
     Route: 065
  149. FOLIC ACID [Concomitant]
     Active Substance: FOLIC ACID
  150. FOLIC ACID [Concomitant]
     Active Substance: FOLIC ACID
  151. FOLIC ACID [Concomitant]
     Active Substance: FOLIC ACID
     Route: 065
  152. FOLIC ACID [Concomitant]
     Active Substance: FOLIC ACID
     Route: 065
  153. FOLIC ACID [Concomitant]
     Active Substance: FOLIC ACID
     Dosage: 5 MILLIGRAM, QW
     Dates: start: 20220323
  154. FOLIC ACID [Concomitant]
     Active Substance: FOLIC ACID
     Dosage: 5 MILLIGRAM, QW
     Dates: start: 20220323
  155. FOLIC ACID [Concomitant]
     Active Substance: FOLIC ACID
     Dosage: 5 MILLIGRAM, QW
     Route: 065
     Dates: start: 20220323
  156. FOLIC ACID [Concomitant]
     Active Substance: FOLIC ACID
     Dosage: 5 MILLIGRAM, QW
     Route: 065
     Dates: start: 20220323
  157. PYRIDOXINE HYDROCHLORIDE [Concomitant]
     Active Substance: PYRIDOXINE HYDROCHLORIDE
     Indication: Vitamin supplementation
  158. PYRIDOXINE HYDROCHLORIDE [Concomitant]
     Active Substance: PYRIDOXINE HYDROCHLORIDE
  159. PYRIDOXINE HYDROCHLORIDE [Concomitant]
     Active Substance: PYRIDOXINE HYDROCHLORIDE
     Route: 065
  160. PYRIDOXINE HYDROCHLORIDE [Concomitant]
     Active Substance: PYRIDOXINE HYDROCHLORIDE
     Route: 065
  161. PYRIDOXINE HYDROCHLORIDE [Concomitant]
     Active Substance: PYRIDOXINE HYDROCHLORIDE
     Route: 065
  162. PYRIDOXINE HYDROCHLORIDE [Concomitant]
     Active Substance: PYRIDOXINE HYDROCHLORIDE
     Route: 065
  163. PYRIDOXINE HYDROCHLORIDE [Concomitant]
     Active Substance: PYRIDOXINE HYDROCHLORIDE
  164. PYRIDOXINE HYDROCHLORIDE [Concomitant]
     Active Substance: PYRIDOXINE HYDROCHLORIDE
  165. PYRIDOXINE HYDROCHLORIDE [Concomitant]
     Active Substance: PYRIDOXINE HYDROCHLORIDE
     Route: 065
  166. PYRIDOXINE HYDROCHLORIDE [Concomitant]
     Active Substance: PYRIDOXINE HYDROCHLORIDE
  167. PYRIDOXINE HYDROCHLORIDE [Concomitant]
     Active Substance: PYRIDOXINE HYDROCHLORIDE
  168. PYRIDOXINE HYDROCHLORIDE [Concomitant]
     Active Substance: PYRIDOXINE HYDROCHLORIDE
     Route: 065
  169. PYRIDOXINE HYDROCHLORIDE [Concomitant]
     Active Substance: PYRIDOXINE HYDROCHLORIDE
  170. PYRIDOXINE HYDROCHLORIDE [Concomitant]
     Active Substance: PYRIDOXINE HYDROCHLORIDE
  171. PYRIDOXINE HYDROCHLORIDE [Concomitant]
     Active Substance: PYRIDOXINE HYDROCHLORIDE
     Route: 065
  172. PYRIDOXINE HYDROCHLORIDE [Concomitant]
     Active Substance: PYRIDOXINE HYDROCHLORIDE
     Route: 065
  173. EMPAGLIFLOZIN [Concomitant]
     Active Substance: EMPAGLIFLOZIN
     Indication: Diabetes mellitus
  174. EMPAGLIFLOZIN [Concomitant]
     Active Substance: EMPAGLIFLOZIN
     Route: 048
  175. EMPAGLIFLOZIN [Concomitant]
     Active Substance: EMPAGLIFLOZIN
     Route: 048
  176. EMPAGLIFLOZIN [Concomitant]
     Active Substance: EMPAGLIFLOZIN
  177. PATIROMER [Concomitant]
     Active Substance: PATIROMER
     Indication: Blood potassium increased
  178. PATIROMER [Concomitant]
     Active Substance: PATIROMER
     Route: 065
  179. PATIROMER [Concomitant]
     Active Substance: PATIROMER
     Route: 065
  180. PATIROMER [Concomitant]
     Active Substance: PATIROMER
  181. HERBALS\PLANTAGO OVATA LEAF [Concomitant]
     Active Substance: HERBALS\PLANTAGO OVATA LEAF
     Indication: Laxative supportive care
  182. HERBALS\PLANTAGO OVATA LEAF [Concomitant]
     Active Substance: HERBALS\PLANTAGO OVATA LEAF
     Route: 065
  183. HERBALS\PLANTAGO OVATA LEAF [Concomitant]
     Active Substance: HERBALS\PLANTAGO OVATA LEAF
     Route: 065
  184. HERBALS\PLANTAGO OVATA LEAF [Concomitant]
     Active Substance: HERBALS\PLANTAGO OVATA LEAF
  185. TIAPRIDE [Concomitant]
     Active Substance: TIAPRIDE
     Indication: Antipsychotic therapy
  186. TIAPRIDE [Concomitant]
     Active Substance: TIAPRIDE
  187. TIAPRIDE [Concomitant]
     Active Substance: TIAPRIDE
     Route: 065
  188. TIAPRIDE [Concomitant]
     Active Substance: TIAPRIDE
     Route: 065
  189. TIAPRIDE [Concomitant]
     Active Substance: TIAPRIDE
  190. TIAPRIDE [Concomitant]
     Active Substance: TIAPRIDE
  191. TIAPRIDE [Concomitant]
     Active Substance: TIAPRIDE
     Route: 065
  192. TIAPRIDE [Concomitant]
     Active Substance: TIAPRIDE
     Route: 065
  193. QUETIAPINE [Concomitant]
     Active Substance: QUETIAPINE
     Indication: Antipsychotic therapy
     Route: 065
  194. QUETIAPINE [Concomitant]
     Active Substance: QUETIAPINE
  195. QUETIAPINE [Concomitant]
     Active Substance: QUETIAPINE
  196. QUETIAPINE [Concomitant]
     Active Substance: QUETIAPINE
     Route: 065
  197. QUETIAPINE [Concomitant]
     Active Substance: QUETIAPINE
     Route: 065
  198. QUETIAPINE [Concomitant]
     Active Substance: QUETIAPINE
  199. QUETIAPINE [Concomitant]
     Active Substance: QUETIAPINE
  200. QUETIAPINE [Concomitant]
     Active Substance: QUETIAPINE
     Route: 065
  201. QUETIAPINE [Concomitant]
     Active Substance: QUETIAPINE
  202. QUETIAPINE [Concomitant]
     Active Substance: QUETIAPINE
  203. QUETIAPINE [Concomitant]
     Active Substance: QUETIAPINE
     Route: 065
  204. QUETIAPINE [Concomitant]
     Active Substance: QUETIAPINE
     Route: 065
  205. QUETIAPINE [Concomitant]
     Active Substance: QUETIAPINE
  206. QUETIAPINE [Concomitant]
     Active Substance: QUETIAPINE
  207. QUETIAPINE [Concomitant]
     Active Substance: QUETIAPINE
     Route: 065
  208. QUETIAPINE [Concomitant]
     Active Substance: QUETIAPINE
     Route: 065
  209. LACOSAMIDE [Concomitant]
     Active Substance: LACOSAMIDE
     Indication: Prophylaxis
     Route: 065
  210. LACOSAMIDE [Concomitant]
     Active Substance: LACOSAMIDE
  211. LACOSAMIDE [Concomitant]
     Active Substance: LACOSAMIDE
  212. LACOSAMIDE [Concomitant]
     Active Substance: LACOSAMIDE
     Route: 065
  213. LACOSAMIDE [Concomitant]
     Active Substance: LACOSAMIDE
     Route: 065
  214. LACOSAMIDE [Concomitant]
     Active Substance: LACOSAMIDE
  215. LACOSAMIDE [Concomitant]
     Active Substance: LACOSAMIDE
  216. LACOSAMIDE [Concomitant]
     Active Substance: LACOSAMIDE
     Route: 065
  217. LACOSAMIDE [Concomitant]
     Active Substance: LACOSAMIDE
  218. LACOSAMIDE [Concomitant]
     Active Substance: LACOSAMIDE
  219. LACOSAMIDE [Concomitant]
     Active Substance: LACOSAMIDE
     Route: 065
  220. LACOSAMIDE [Concomitant]
     Active Substance: LACOSAMIDE
     Route: 065
  221. LACOSAMIDE [Concomitant]
     Active Substance: LACOSAMIDE
  222. LACOSAMIDE [Concomitant]
     Active Substance: LACOSAMIDE
  223. LACOSAMIDE [Concomitant]
     Active Substance: LACOSAMIDE
     Route: 065
  224. LACOSAMIDE [Concomitant]
     Active Substance: LACOSAMIDE
     Route: 065
  225. OLANZAPINE [Concomitant]
     Active Substance: OLANZAPINE
     Indication: Antipsychotic therapy
     Route: 065
  226. OLANZAPINE [Concomitant]
     Active Substance: OLANZAPINE
  227. OLANZAPINE [Concomitant]
     Active Substance: OLANZAPINE
  228. OLANZAPINE [Concomitant]
     Active Substance: OLANZAPINE
     Route: 065
  229. OLANZAPINE [Concomitant]
     Active Substance: OLANZAPINE
     Route: 065
  230. OLANZAPINE [Concomitant]
     Active Substance: OLANZAPINE
  231. OLANZAPINE [Concomitant]
     Active Substance: OLANZAPINE
  232. OLANZAPINE [Concomitant]
     Active Substance: OLANZAPINE
     Route: 065
  233. OLANZAPINE [Concomitant]
     Active Substance: OLANZAPINE
  234. OLANZAPINE [Concomitant]
     Active Substance: OLANZAPINE
  235. OLANZAPINE [Concomitant]
     Active Substance: OLANZAPINE
     Route: 065
  236. OLANZAPINE [Concomitant]
     Active Substance: OLANZAPINE
     Route: 065
  237. OLANZAPINE [Concomitant]
     Active Substance: OLANZAPINE
  238. OLANZAPINE [Concomitant]
     Active Substance: OLANZAPINE
  239. OLANZAPINE [Concomitant]
     Active Substance: OLANZAPINE
     Route: 065
  240. OLANZAPINE [Concomitant]
     Active Substance: OLANZAPINE
     Route: 065
  241. CLONAZEPAM [Concomitant]
     Active Substance: CLONAZEPAM
     Indication: Prophylaxis
     Route: 065
  242. CLONAZEPAM [Concomitant]
     Active Substance: CLONAZEPAM
  243. CLONAZEPAM [Concomitant]
     Active Substance: CLONAZEPAM
  244. CLONAZEPAM [Concomitant]
     Active Substance: CLONAZEPAM
     Route: 065
  245. CLONAZEPAM [Concomitant]
     Active Substance: CLONAZEPAM
     Route: 065
  246. CLONAZEPAM [Concomitant]
     Active Substance: CLONAZEPAM
  247. CLONAZEPAM [Concomitant]
     Active Substance: CLONAZEPAM
  248. CLONAZEPAM [Concomitant]
     Active Substance: CLONAZEPAM
     Route: 065
  249. CLONAZEPAM [Concomitant]
     Active Substance: CLONAZEPAM
  250. CLONAZEPAM [Concomitant]
     Active Substance: CLONAZEPAM
  251. CLONAZEPAM [Concomitant]
     Active Substance: CLONAZEPAM
     Route: 065
  252. CLONAZEPAM [Concomitant]
     Active Substance: CLONAZEPAM
     Route: 065
  253. CLONAZEPAM [Concomitant]
     Active Substance: CLONAZEPAM
  254. CLONAZEPAM [Concomitant]
     Active Substance: CLONAZEPAM
  255. CLONAZEPAM [Concomitant]
     Active Substance: CLONAZEPAM
     Route: 065
  256. CLONAZEPAM [Concomitant]
     Active Substance: CLONAZEPAM
     Route: 065

REACTIONS (18)
  - Pulmonary embolism [Recovered/Resolved]
  - Neuropsychological symptoms [Recovering/Resolving]
  - Obsessive thoughts [Unknown]
  - Jealous delusion [Unknown]
  - Motor dysfunction [Unknown]
  - Irritability [Unknown]
  - Intrusive thoughts [Unknown]
  - Agitation [Unknown]
  - Hallucination [Unknown]
  - Atrial fibrillation [Recovered/Resolved]
  - Confusional state [Unknown]
  - Cardiac failure congestive [Recovered/Resolved]
  - Delusion of replacement [Unknown]
  - Affective disorder [Unknown]
  - Delusion [Unknown]
  - Anxiety [Unknown]
  - Insomnia [Unknown]
  - Depression [Unknown]

NARRATIVE: CASE EVENT DATE: 20190101
